FAERS Safety Report 12954647 (Version 1)
Quarter: 2016Q4

REPORT INFORMATION
  Report Type: Spontaneous
  Country: SE (occurrence: SE)
  Receive Date: 20161118
  Receipt Date: 20161118
  Transmission Date: 20170207
  Serious: Yes (Death)
  Sender: FDA-Public Use
  Company Number: SE-ASPEN PHARMA TRADING LIMITED US-AG-2016-008859

PATIENT
  Age: 71 Year
  Sex: Male

DRUGS (2)
  1. MYLERAN [Suspect]
     Active Substance: BUSULFAN
     Indication: BLOOD DISORDER
     Route: 048
     Dates: start: 201404, end: 20140515
  2. FRAGMIN [Concomitant]
     Active Substance: DALTEPARIN SODIUM
     Indication: PRODUCT USED FOR UNKNOWN INDICATION
     Route: 065

REACTIONS (2)
  - Death [Fatal]
  - Off label use [Not Recovered/Not Resolved]

NARRATIVE: CASE EVENT DATE: 201404
